FAERS Safety Report 13422983 (Version 2)
Quarter: 2020Q2

REPORT INFORMATION
  Report Type: Report from Study
  Country: US (occurrence: US)
  Receive Date: 20170410
  Receipt Date: 20200612
  Transmission Date: 20200713
  Serious: No
  Sender: FDA-Public Use
  Company Number: US-009507513-1703USA014647

PATIENT
  Sex: Male

DRUGS (8)
  1. DULERA [Suspect]
     Active Substance: FORMOTEROL FUMARATE DIHYDRATE\MOMETASONE FUROATE
     Indication: CHRONIC OBSTRUCTIVE PULMONARY DISEASE
     Dosage: UNK
     Route: 055
  2. DULERA [Suspect]
     Active Substance: FORMOTEROL FUMARATE DIHYDRATE\MOMETASONE FUROATE
     Dosage: ONCE A DAY AT NIGHT
  3. DULERA [Suspect]
     Active Substance: FORMOTEROL FUMARATE DIHYDRATE\MOMETASONE FUROATE
     Indication: ASTHMA
     Dosage: TWICE A DAY
     Dates: start: 2019
  4. SYMBICORT [Suspect]
     Active Substance: BUDESONIDE\FORMOTEROL FUMARATE DIHYDRATE
     Dosage: UNK
  5. PROAIR HFA [Suspect]
     Active Substance: ALBUTEROL SULFATE
     Dosage: UNK
  6. RHINOCORT [Suspect]
     Active Substance: BUDESONIDE
     Dosage: UNK
  7. VENTOLIN [Concomitant]
     Active Substance: ALBUTEROL SULFATE
  8. DULERA [Suspect]
     Active Substance: FORMOTEROL FUMARATE DIHYDRATE\MOMETASONE FUROATE
     Indication: CHRONIC OBSTRUCTIVE PULMONARY DISEASE
     Dosage: 2 INHALATIONS, BID; THERAPY ROUTE: ORAL INHALATION
     Route: 055
     Dates: start: 201702

REACTIONS (10)
  - Infection [Recovered/Resolved]
  - Insomnia [Not Recovered/Not Resolved]
  - Dyspnoea [Recovered/Resolved]
  - Dyspnoea [Not Recovered/Not Resolved]
  - Product dose omission [Unknown]
  - Respiratory tract congestion [Not Recovered/Not Resolved]
  - Product quality issue [Unknown]
  - Product use issue [Unknown]
  - Product availability issue [Unknown]
  - White blood cell count increased [Recovered/Resolved]

NARRATIVE: CASE EVENT DATE: 2017
